FAERS Safety Report 8983057 (Version 1)
Quarter: 2012Q4

REPORT INFORMATION
  Report Type: 
  Country: GB (occurrence: GB)
  Receive Date: 20121224
  Receipt Date: 20121224
  Transmission Date: 20130627
  Serious: Yes (Other)
  Sender: FDA-Public Use
  Company Number: GB-ASTELLAS-2012EU011084

PATIENT
  Sex: Female

DRUGS (2)
  1. VESICARE [Suspect]
     Dosage: UNK
     Route: 065
     Dates: start: 20121114
  2. LANSOPRAZOLE [Interacting]
     Indication: REFLUX GASTRITIS
     Dosage: UNK
     Route: 065

REACTIONS (5)
  - Drug interaction [Unknown]
  - Malaise [Unknown]
  - Circulatory collapse [Unknown]
  - Disorientation [Unknown]
  - Dizziness [Unknown]
